FAERS Safety Report 22369819 (Version 1)
Quarter: 2023Q2

REPORT INFORMATION
  Report Type: Report from Study
  Country: US (occurrence: US)
  Receive Date: 20230526
  Receipt Date: 20230526
  Transmission Date: 20230721
  Serious: No
  Sender: FDA-Public Use
  Company Number: US-002147023-NVSC2023US118186

PATIENT
  Sex: Female
  Weight: 111.13 kg

DRUGS (4)
  1. BETAMETHASONE [Suspect]
     Active Substance: BETAMETHASONE
     Indication: Psoriasis
     Dosage: UNK
     Route: 065
  2. CHOLECALCIFEROL [Suspect]
     Active Substance: CHOLECALCIFEROL
     Indication: Psoriasis
     Dosage: UNK
     Route: 065
  3. ESCITALOPRAM [Suspect]
     Active Substance: ESCITALOPRAM OXALATE
     Indication: Psoriasis
     Dosage: UNK
     Route: 065
  4. CYANOCOBALAMIN\FOLIC ACID [Suspect]
     Active Substance: CYANOCOBALAMIN\FOLIC ACID
     Indication: Psoriasis
     Dosage: UNK
     Route: 065

REACTIONS (5)
  - Papule [Unknown]
  - Vitiligo [Unknown]
  - Macule [Unknown]
  - Solar lentigo [Unknown]
  - Treatment failure [Unknown]
